FAERS Safety Report 13234025 (Version 2)
Quarter: 2017Q2

REPORT INFORMATION
  Report Type: Spontaneous
  Country: JP (occurrence: JP)
  Receive Date: 20170215
  Receipt Date: 20170412
  Transmission Date: 20170830
  Serious: Yes (Life-Threatening, Other)
  Sender: FDA-Public Use
  Company Number: JP-009507513-1702JPN000458J

PATIENT
  Age: 71 Year
  Sex: Female
  Weight: 51 kg

DRUGS (1)
  1. BRIDION [Suspect]
     Active Substance: SUGAMMADEX
     Indication: NEUROMUSCULAR BLOCKADE REVERSAL
     Dosage: UNK
     Route: 042
     Dates: start: 20150514, end: 20150514

REACTIONS (1)
  - Kounis syndrome [Recovering/Resolving]

NARRATIVE: CASE EVENT DATE: 20150514
